FAERS Safety Report 24916457 (Version 2)
Quarter: 2025Q2

REPORT INFORMATION
  Report Type: Spontaneous
  Country: US (occurrence: US)
  Receive Date: 20250203
  Receipt Date: 20250519
  Transmission Date: 20250716
  Serious: No
  Sender: MARIUS PHARMACEUTICALS
  Company Number: US-MARIUS PHARMACEUTICALS, LLC-2025US000188

PATIENT

DRUGS (3)
  1. KYZATREX [Suspect]
     Active Substance: TESTOSTERONE UNDECANOATE
     Indication: Blood testosterone decreased
     Dosage: 400 MG, BID
     Dates: start: 20250110, end: 202501
  2. KYZATREX [Suspect]
     Active Substance: TESTOSTERONE UNDECANOATE
     Indication: Testicular failure
  3. BOTOX [Concomitant]
     Active Substance: ONABOTULINUMTOXINA
     Indication: Migraine

REACTIONS (1)
  - Migraine [Recovered/Resolved]

NARRATIVE: CASE EVENT DATE: 20250113
